FAERS Safety Report 7238159-3 (Version None)
Quarter: 2011Q1

REPORT INFORMATION
  Report Type: 
  Country: None (occurrence: None)
  Receive Date: 20110121
  Receipt Date: 20110118
  Transmission Date: 20110831
  Serious: Yes (Hospitalization)
  Sender: FDA-Public Use
  Company Number: DE-ABBOTT-11P-062-0699065-00

PATIENT
  Sex: Female

DRUGS (1)
  1. CLARITHROMYCIN [Suspect]
     Indication: SUICIDE ATTEMPT
     Dosage: 5-250 MG TABS AT ONCE
     Route: 048
     Dates: start: 20110118, end: 20110118

REACTIONS (3)
  - PARAESTHESIA [None]
  - SUICIDE ATTEMPT [None]
  - HYPERVENTILATION [None]
